FAERS Safety Report 6816371-2 (Version None)
Quarter: 2010Q3

REPORT INFORMATION
  Report Type: 
  Country: None (occurrence: None)
  Receive Date: 20100705
  Receipt Date: 20100622
  Transmission Date: 20110219
  Serious: Yes (Hospitalization)
  Sender: FDA-Public Use
  Company Number: PHHY2010IL41619

PATIENT
  Age: 43 Year
  Sex: Male

DRUGS (1)
  1. EXJADE [Suspect]
     Indication: CONGENITAL ANAEMIA
     Route: 048

REACTIONS (3)
  - BENIGN INTRACRANIAL HYPERTENSION [None]
  - HAEMOLYSIS [None]
  - PYREXIA [None]
